FAERS Safety Report 24102817 (Version 1)
Quarter: 2024Q3

REPORT INFORMATION
  Report Type: Spontaneous
  Country: FR (occurrence: FR)
  Receive Date: 20240717
  Receipt Date: 20240717
  Transmission Date: 20241016
  Serious: Yes (Other)
  Sender: ROCHE
  Company Number: FR-ROCHE-10000026450

PATIENT
  Age: 72 Year
  Sex: Female

DRUGS (3)
  1. VABYSMO [Suspect]
     Active Substance: FARICIMAB\FARICIMAB-SVOA
     Indication: Age-related macular degeneration
     Route: 050
  2. AFLIBERCEPT [Concomitant]
     Active Substance: AFLIBERCEPT
  3. RANIBIZUMAB [Concomitant]
     Active Substance: RANIBIZUMAB

REACTIONS (5)
  - Central serous chorioretinopathy [Unknown]
  - Iridocyclitis [Unknown]
  - Ocular hypertension [Unknown]
  - Anterior chamber flare [Unknown]
  - Detachment of retinal pigment epithelium [Unknown]

NARRATIVE: CASE EVENT DATE: 20240531
